FAERS Safety Report 16115900 (Version 1)
Quarter: 2019Q2

REPORT INFORMATION
  Report Type: Spontaneous
  Country: US (occurrence: US)
  Receive Date: 20190325
  Receipt Date: 20190325
  Transmission Date: 20190711
  Serious: Yes (Hospitalization, Other)
  Sender: FDA-Public Use
  Company Number: None

PATIENT
  Age: 70 Year
  Sex: Female
  Weight: 62.1 kg

DRUGS (10)
  1. PROLIA [Suspect]
     Active Substance: DENOSUMAB
     Indication: BREAST CANCER
     Dosage: ?          QUANTITY:1 INJECTION(S);OTHER FREQUENCY:Q 6 MONTHS;OTHER ROUTE:INJECTED SQ?
     Dates: start: 20181231, end: 20181231
  2. CALCIUM WITH VIT D [Concomitant]
  3. BABY ASPIRIN [Concomitant]
     Active Substance: ASPIRIN
  4. FISH OIL [Concomitant]
     Active Substance: FISH OIL
  5. ANASTROZOLE. [Concomitant]
     Active Substance: ANASTROZOLE
  6. CLINDAMYCIN. [Concomitant]
     Active Substance: CLINDAMYCIN
  7. MVI [Concomitant]
     Active Substance: VITAMINS
  8. PROLIA [Suspect]
     Active Substance: DENOSUMAB
     Indication: OSTEOPOROSIS
     Dosage: ?          QUANTITY:1 INJECTION(S);OTHER FREQUENCY:Q 6 MONTHS;OTHER ROUTE:INJECTED SQ?
     Dates: start: 20181231, end: 20181231
  9. BENICAR [Concomitant]
     Active Substance: OLMESARTAN MEDOXOMIL
  10. CIPRO [Concomitant]
     Active Substance: CIPROFLOXACIN HYDROCHLORIDE

REACTIONS (6)
  - Toe amputation [None]
  - Erythema [None]
  - Foot deformity [None]
  - Pain [None]
  - Peripheral swelling [None]
  - Osteomyelitis [None]

NARRATIVE: CASE EVENT DATE: 20190308
